FAERS Safety Report 9847483 (Version 1)
Quarter: 2014Q1

REPORT INFORMATION
  Report Type: Spontaneous
  Country: US (occurrence: US)
  Receive Date: 20140127
  Receipt Date: 20140127
  Transmission Date: 20141002
  Serious: Yes (Other)
  Sender: FDA-Public Use
  Company Number: US-AMGEN-USASP2014004914

PATIENT
  Age: 88 Year
  Sex: Male
  Weight: 71.66 kg

DRUGS (3)
  1. PROCRIT [Suspect]
     Indication: 5Q MINUS SYNDROME
     Dosage: 4000 UNIT, QWK
     Route: 058
     Dates: start: 20131113
  2. WARFARIN [Concomitant]
     Indication: ATRIAL FIBRILLATION
     Dosage: 5 MG, 5 DAYS A WEEK
     Route: 048
  3. WARFARIN [Concomitant]
     Dosage: 5 MG, 2 TIMES/WK
     Route: 048

REACTIONS (3)
  - Visual impairment [Not Recovered/Not Resolved]
  - Quality of life decreased [Not Recovered/Not Resolved]
  - Blood count abnormal [Unknown]
